FAERS Safety Report 10445935 (Version 2)
Quarter: 2014Q3

REPORT INFORMATION
  Report Type: Report from Study
  Country: TW (occurrence: TW)
  Receive Date: 20140910
  Receipt Date: 20140916
  Transmission Date: 20150326
  Serious: Yes (Hospitalization)
  Sender: FDA-Public Use
  Company Number: TW-ONYX-2014-1940

PATIENT
  Age: 63 Year
  Sex: Male

DRUGS (15)
  1. NORVASC [Concomitant]
     Active Substance: AMLODIPINE BESYLATE
     Indication: HYPERTENSION
     Route: 048
     Dates: start: 20140529
  2. PARMASON [Concomitant]
     Indication: PROPHYLAXIS
     Route: 061
     Dates: start: 20140731, end: 20140806
  3. CARFILZOMIB [Suspect]
     Active Substance: CARFILZOMIB
     Indication: PLASMA CELL MYELOMA
     Route: 042
     Dates: start: 20130701, end: 20130702
  4. NINCORT [Concomitant]
     Indication: PROPHYLAXIS
     Route: 048
     Dates: start: 20140801
  5. ACETAMINOPHINE [Concomitant]
     Indication: PROPHYLAXIS
     Route: 048
     Dates: start: 20140513
  6. CARFILZOMIB [Suspect]
     Active Substance: CARFILZOMIB
     Route: 042
     Dates: start: 20130708, end: 20130716
  7. DEXAMETHASONE. [Suspect]
     Active Substance: DEXAMETHASONE
     Indication: PLASMA CELL MYELOMA
     Route: 048
     Dates: start: 20130701
  8. VALTERX [Concomitant]
     Indication: PROPHYLAXIS
     Route: 048
     Dates: start: 20130701
  9. ALLERGRA [Concomitant]
     Indication: COUGH
     Route: 048
     Dates: start: 20140128
  10. CARFILZOMIB [Suspect]
     Active Substance: CARFILZOMIB
     Route: 042
     Dates: start: 20130730
  11. PROCTOSEDYL [Concomitant]
     Active Substance: DIBUCAINE HYDROCHLORIDE\HYDROCORTISONE
     Indication: HAEMORRHOIDS
     Route: 050
     Dates: start: 20130606
  12. CODEINE [Concomitant]
     Active Substance: CODEINE
     Indication: COUGH
     Route: 048
     Dates: start: 20140513
  13. SENNAPUR [Concomitant]
     Indication: CONSTIPATION
     Route: 048
     Dates: start: 20140605
  14. NEXIUM [Concomitant]
     Active Substance: ESOMEPRAZOLE MAGNESIUM
     Indication: PROPHYLAXIS
     Route: 048
     Dates: start: 20130701
  15. ZOMETA [Concomitant]
     Active Substance: ZOLEDRONIC ACID
     Indication: PROPHYLAXIS
     Route: 042
     Dates: start: 20140821

REACTIONS (1)
  - Hypogammaglobulinaemia [Recovered/Resolved]

NARRATIVE: CASE EVENT DATE: 20140903
